APPROVED DRUG PRODUCT: DIAZEPAM
Active Ingredient: DIAZEPAM
Strength: 10MG
Dosage Form/Route: TABLET;ORAL
Application: A070776 | Product #001
Applicant: PIONEER PHARMACEUTICALS INC
Approved: Aug 2, 1988 | RLD: No | RS: No | Type: DISCN